FAERS Safety Report 24195006 (Version 5)
Quarter: 2025Q3

REPORT INFORMATION
  Report Type: Spontaneous
  Country: US (occurrence: US)
  Receive Date: 20240809
  Receipt Date: 20250717
  Transmission Date: 20251020
  Serious: No
  Sender: PFIZER
  Company Number: US-PFIZER INC-PV202400102863

PATIENT
  Age: 76 Year
  Sex: Female

DRUGS (5)
  1. XELJANZ [Suspect]
     Active Substance: TOFACITINIB CITRATE
     Indication: Colitis ulcerative
     Dosage: 10 MG, 2X/DAY
     Route: 048
     Dates: start: 20240301
  2. XELJANZ [Suspect]
     Active Substance: TOFACITINIB CITRATE
     Dosage: 10 MG, 2X/DAY
     Route: 048
     Dates: start: 20240301, end: 20240527
  3. XELJANZ [Suspect]
     Active Substance: TOFACITINIB CITRATE
     Dosage: 5 MG, 2X/DAY
     Route: 048
     Dates: start: 20240528, end: 202410
  4. XELJANZ [Suspect]
     Active Substance: TOFACITINIB CITRATE
     Dosage: 10 MG, 2X/DAY
     Route: 048
     Dates: start: 202410
  5. XELJANZ [Suspect]
     Active Substance: TOFACITINIB CITRATE

REACTIONS (1)
  - Condition aggravated [Recovering/Resolving]

NARRATIVE: CASE EVENT DATE: 20241001
